FAERS Safety Report 18606873 (Version 2)
Quarter: 2021Q1

REPORT INFORMATION
  Report Type: Spontaneous
  Country: US (occurrence: US)
  Receive Date: 20201212
  Receipt Date: 20210111
  Transmission Date: 20210419
  Serious: No
  Sender: FDA-Public Use
  Company Number: US-GLAXOSMITHKLINE-US2020AMR240157

PATIENT
  Sex: Female
  Weight: 81.65 kg

DRUGS (1)
  1. IMITREX [Suspect]
     Active Substance: SUMATRIPTAN SUCCINATE
     Indication: MIGRAINE
     Dosage: UNK

REACTIONS (4)
  - Drug ineffective [Unknown]
  - Malaise [Unknown]
  - Mobility decreased [Unknown]
  - Vomiting [Unknown]
